FAERS Safety Report 8442732-4 (Version None)
Quarter: 2012Q2

REPORT INFORMATION
  Report Type: 
  Country: None (occurrence: None)
  Receive Date: 20120323
  Receipt Date: 20110615
  Transmission Date: 20120825
  Serious: Yes (Other)
  Sender: FDA-Public Use
  Company Number: 163-21880-11062126

PATIENT
  Age: 49 Year
  Sex: Male

DRUGS (6)
  1. TANDEM (TANDEM F) [Concomitant]
  2. CARAFATE [Concomitant]
  3. PRILOSEC [Concomitant]
  4. REVLIMID [Suspect]
     Indication: MULTIPLE MYELOMA
     Dosage: 10 MG, DAILY FOR 21 DAYS, PO
     Route: 048
     Dates: start: 20110201
  5. FLONASE [Concomitant]
  6. PROCRIT [Concomitant]

REACTIONS (1)
  - THROMBOSIS IN DEVICE [None]
